FAERS Safety Report 6781753-4 (Version None)
Quarter: 2010Q2

REPORT INFORMATION
  Report Type: 
  Country: None (occurrence: None)
  Receive Date: 20100621
  Receipt Date: 20100614
  Transmission Date: 20101027
  Serious: Yes (Hospitalization)
  Sender: FDA-Public Use
  Company Number: NL-ALEXION-A201000689

PATIENT

DRUGS (7)
  1. SOLIRIS [Suspect]
     Indication: HAEMOLYTIC URAEMIC SYNDROME
     Dosage: 900 MG, UNK
     Route: 042
     Dates: start: 20090121, end: 20090215
  2. SOLIRIS [Suspect]
     Dosage: 1200 MG, UNK
     Route: 042
     Dates: start: 20090228
  3. MYCOPHENOLATE MOFETIL [Suspect]
     Indication: RENAL TRANSPLANT
     Dosage: 500 MG, TID
     Route: 048
     Dates: start: 20080101
  4. PREDNISOLON                        /00016201/ [Suspect]
     Indication: RENAL TRANSPLANT
     Dosage: 5 MG, UNK
     Route: 048
     Dates: start: 20080101
  5. TACROLIMUS [Suspect]
     Indication: RENAL TRANSPLANT
     Dosage: 2 MG, BID
     Route: 048
     Dates: start: 20080101
  6. ALFACALCIDOL [Concomitant]
     Indication: RENAL OSTEODYSTROPHY
     Dosage: 0.5 UG, UNK
     Route: 048
     Dates: start: 20080101
  7. ASCAL                              /00002702/ [Concomitant]
     Indication: TRANSIENT ISCHAEMIC ATTACK
     Dosage: 100 MG, UNK
     Route: 048
     Dates: start: 20080101

REACTIONS (1)
  - MENINGOCOCCAL SEPSIS [None]
